FAERS Safety Report 4867772-3 (Version None)
Quarter: 2005Q4

REPORT INFORMATION
  Report Type: 
  Country: None (occurrence: None)
  Receive Date: 20051223
  Receipt Date: 20051223
  Transmission Date: 20060501
  Serious: Yes (Life-Threatening, Hospitalization)
  Sender: FDA-Public Use
  Company Number: None

PATIENT
  Sex: Male
  Weight: 106 kg

DRUGS (31)
  1. CISPLATIN [Suspect]
     Indication: OESOPHAGEAL CARCINOMA
     Dosage: 30MG/M IV
     Route: 042
     Dates: start: 20050701, end: 20050805
  2. IRINOTECAN HCL [Suspect]
     Indication: OESOPHAGEAL CARCINOMA
     Dosage: 65MG/M IV
     Route: 042
     Dates: start: 20050701, end: 20050805
  3. CETUXIMAB (MG/M2), WK 1-9 WK 15-44 [Suspect]
     Indication: OESOPHAGEAL CARCINOMA
     Dosage: 250 MG/2 IV
     Route: 042
     Dates: start: 20050624, end: 20050826
  4. CETUXIMAB (MG/M2), WK 1-9 WK 15-44 [Suspect]
     Indication: OESOPHAGEAL CARCINOMA
     Dosage: 250 MG/2 IV
     Route: 042
     Dates: start: 20041101, end: 20051111
  5. XRT, D1-5, WK 2-7 [Suspect]
     Indication: OESOPHAGEAL CARCINOMA
     Dosage: 180 GCY
     Dates: start: 20050627, end: 20050809
  6. ADDERALL 10 [Concomitant]
  7. ALPRAZOLAM [Concomitant]
  8. AMANTADINE HCL [Concomitant]
  9. ASPIRIN [Concomitant]
  10. INSULIN SYRINGES [Concomitant]
  11. CLINDAMYCIN [Concomitant]
  12. DEPAKOTE [Concomitant]
  13. DIOVAN [Concomitant]
  14. IMDUR [Concomitant]
  15. REGULAR INSULIN [Concomitant]
  16. IRON [Concomitant]
  17. LEVAQUIN [Concomitant]
  18. LEVOCARNITINE [Concomitant]
  19. LIPITOR [Concomitant]
  20. LANCETS [Concomitant]
  21. LOPRESSOR [Concomitant]
  22. OXYCODONE [Concomitant]
  23. OXYCONTIN [Concomitant]
  24. PEPCID [Concomitant]
  25. PROZAC [Concomitant]
  26. RISPERDAL [Concomitant]
  27. TOPAMAX [Concomitant]
  28. TRICOR [Concomitant]
  29. WELLBUTRIN [Concomitant]
  30. ZETIA [Concomitant]
  31. ZYPREXA [Concomitant]

REACTIONS (6)
  - CHEST PAIN [None]
  - LUNG INFILTRATION [None]
  - PNEUMONIA [None]
  - PNEUMONIA ASPIRATION [None]
  - PNEUMONITIS [None]
  - PULMONARY EMBOLISM [None]
